FAERS Safety Report 9234096 (Version 3)
Quarter: 2018Q1

REPORT INFORMATION
  Report Type: Spontaneous
  Country: JP (occurrence: JP)
  Receive Date: 20130416
  Receipt Date: 20180126
  Transmission Date: 20180509
  Serious: Yes (Other)
  Sender: FDA-Public Use
  Company Number: JP-PFIZER INC-2013116397

PATIENT
  Age: 45 Year

DRUGS (2)
  1. METHYLPREDNISOLONE SODIUM SUCCINATE. [Suspect]
     Active Substance: METHYLPREDNISOLONE SODIUM SUCCINATE
     Indication: ENDOCRINE OPHTHALMOPATHY
     Dosage: 500MG FOR 3DAYS WITH 4DAY DRUG INTERRUPTION PERFORMED IN 3CYCLES
     Route: 041
  2. THIAMAZOLE [Concomitant]
     Active Substance: METHIMAZOLE

REACTIONS (2)
  - Hyperglycaemia [Unknown]
  - Diabetes mellitus [Unknown]
